FAERS Safety Report 9696032 (Version 3)
Quarter: 2014Q1

REPORT INFORMATION
  Report Type: Report from Study
  Country: US (occurrence: US)
  Receive Date: 20131119
  Receipt Date: 20140115
  Transmission Date: 20141002
  Serious: Yes (Hospitalization, Other)
  Sender: FDA-Public Use
  Company Number: US-US-EMD SERONO, INC.-7248585

PATIENT
  Age: 37 Year
  Sex: Female

DRUGS (1)
  1. REBIF [Suspect]
     Indication: MULTIPLE SCLEROSIS
     Route: 058
     Dates: start: 20130903

REACTIONS (9)
  - Malaise [Recovering/Resolving]
  - Mood swings [Recovering/Resolving]
  - White blood cell count increased [Unknown]
  - Blood glucose increased [Unknown]
  - Multiple sclerosis relapse [Recovered/Resolved]
  - Viral infection [Recovered/Resolved]
  - Anxiety [Not Recovered/Not Resolved]
  - Increased appetite [Not Recovered/Not Resolved]
  - Abnormal behaviour [Not Recovered/Not Resolved]
